FAERS Safety Report 4879639-5 (Version None)
Quarter: 2006Q1

REPORT INFORMATION
  Report Type: 
  Country: None (occurrence: None)
  Receive Date: 20060111
  Receipt Date: 20051223
  Transmission Date: 20060701
  Serious: Yes (Other)
  Sender: FDA-Public Use
  Company Number: FR200512003215

PATIENT
  Sex: Male

DRUGS (1)
  1. GEMZAR [Suspect]
     Indication: NEOPLASM MALIGNANT
     Dosage: INTRAVENOUS
     Route: 042

REACTIONS (2)
  - JAW DISORDER [None]
  - OSTEONECROSIS [None]
